FAERS Safety Report 7688404-5 (Version None)
Quarter: 2011Q3

REPORT INFORMATION
  Report Type: 
  Country: None (occurrence: None)
  Receive Date: 20110817
  Receipt Date: 20110811
  Transmission Date: 20111222
  Serious: Yes (Other)
  Sender: FDA-Public Use
  Company Number: JP-ROCHE-778894

PATIENT
  Sex: Female
  Weight: 53 kg

DRUGS (17)
  1. DECADRON [Suspect]
     Route: 041
     Dates: start: 20091224, end: 20091224
  2. MOBIC [Suspect]
     Indication: COLON CANCER METASTATIC
     Route: 048
     Dates: start: 20080516, end: 20100108
  3. FAMOTIDINE [Concomitant]
     Route: 048
     Dates: start: 20071126
  4. AVASTIN [Suspect]
     Route: 041
     Dates: start: 20091112, end: 20091224
  5. DECADRON [Suspect]
     Indication: COLON CANCER METASTATIC
     Route: 048
     Dates: start: 20091203, end: 20091207
  6. FLUOROURACIL [Concomitant]
     Route: 040
     Dates: start: 20080424, end: 20091015
  7. LEUCOVORIN CALCIUM [Concomitant]
     Route: 041
     Dates: start: 20080424, end: 20091015
  8. OXYCONTIN [Concomitant]
     Route: 048
     Dates: start: 20080801
  9. XELODA [Suspect]
     Indication: COLON CANCER METASTATIC
     Route: 048
     Dates: start: 20091112, end: 20091230
  10. AVASTIN [Suspect]
     Indication: COLON CANCER METASTATIC
     Route: 041
     Dates: start: 20080828, end: 20091015
  11. DECADRON [Suspect]
     Route: 041
     Dates: start: 20091203, end: 20091203
  12. IRINOTECAN HCL [Concomitant]
     Route: 041
     Dates: start: 20080424, end: 20091015
  13. OXYCONTIN [Concomitant]
     Route: 048
     Dates: start: 20091228
  14. OXYCONTIN [Concomitant]
     Route: 048
     Dates: start: 20091224
  15. DECADRON [Suspect]
     Route: 048
     Dates: start: 20091224, end: 20091228
  16. OXALIPLATIN [Concomitant]
     Route: 041
     Dates: start: 20091112
  17. FLUOROURACIL [Concomitant]
     Route: 041
     Dates: start: 20080424, end: 20091001

REACTIONS (2)
  - DUODENITIS [None]
  - DUODENAL ULCER [None]
